FAERS Safety Report 19810370 (Version 1)
Quarter: 2021Q3

REPORT INFORMATION
  Report Type: Spontaneous
  Country: CA (occurrence: CA)
  Receive Date: 20210909
  Receipt Date: 20210909
  Transmission Date: 20211014
  Serious: Yes (Life-Threatening, Hospitalization, Disabling, Other)
  Sender: FDA-Public Use
  Company Number: CA-ACCORD-237945

PATIENT
  Age: 85 Year
  Sex: Male
  Weight: 83 kg

DRUGS (1)
  1. QUETIAPINE/QUETIAPINE FUMARATE [Suspect]
     Active Substance: QUETIAPINE FUMARATE
     Indication: INSOMNIA
     Route: 048

REACTIONS (8)
  - General physical health deterioration [Unknown]
  - Joint swelling [Unknown]
  - Fall [Unknown]
  - Balance disorder [Unknown]
  - Dementia [Unknown]
  - Infection [Unknown]
  - Tremor [Unknown]
  - Parkinsonism [Unknown]
